FAERS Safety Report 15744869 (Version 2)
Quarter: 2019Q1

REPORT INFORMATION
  Report Type: Spontaneous
  Country: RU (occurrence: RU)
  Receive Date: 20181220
  Receipt Date: 20190111
  Transmission Date: 20190417
  Serious: Yes (Other)
  Sender: FDA-Public Use
  Company Number: RU-BAYER-2018-240020

PATIENT
  Age: 30 Year
  Sex: Female

DRUGS (2)
  1. GADOVIST [Suspect]
     Active Substance: GADOBUTROL
     Indication: NEUROLOGICAL EXAMINATION
     Dosage: 5 ML, UNK
     Route: 042
  2. GADOVIST [Suspect]
     Active Substance: GADOBUTROL
     Indication: CENTRAL NERVOUS SYSTEM LESION

REACTIONS (4)
  - Speech disorder [None]
  - Blood pressure decreased [None]
  - Somnolence [None]
  - Product quality issue [None]
